FAERS Safety Report 5104391-8 (Version None)
Quarter: 2006Q3

REPORT INFORMATION
  Report Type: 
  Country: None (occurrence: None)
  Receive Date: 20060908
  Receipt Date: 20060908
  Transmission Date: 20061208
  Serious: Yes (Hospitalization)
  Sender: FDA-Public Use
  Company Number: None

PATIENT
  Sex: Male
  Weight: 103.1026 kg

DRUGS (10)
  1. MORPHINE [Suspect]
     Indication: BACK PAIN
     Dosage: 15MG    1-2 TABLETS BID    PO
     Route: 048
     Dates: start: 20060519, end: 20060531
  2. ETODOLAC [Concomitant]
  3. GEMFIBROZIL [Concomitant]
  4. HYDROCHLOROTHIAZIDE [Concomitant]
  5. HYDROCORTISONE [Concomitant]
  6. LOVASTATIN [Concomitant]
  7. RANITIDINE HCL [Concomitant]
  8. SERTRALINE HCL [Concomitant]
  9. TERAZOSIN HCL [Concomitant]
  10. TRAZODONE HCL [Concomitant]

REACTIONS (2)
  - COMA [None]
  - OVERDOSE [None]
